FAERS Safety Report 17093126 (Version 1)
Quarter: 2019Q4

REPORT INFORMATION
  Report Type: Spontaneous
  Country: US (occurrence: US)
  Receive Date: 20191101
  Receipt Date: 20191101
  Transmission Date: 20200122
  Serious: Yes (Other)
  Sender: FDA-Public Use
  Company Number: None

PATIENT
  Age: 72 Year
  Sex: Female

DRUGS (14)
  1. DICLOFENAC TOP GEL [Concomitant]
  2. DOCUSATE SODIUM. [Concomitant]
     Active Substance: DOCUSATE SODIUM
  3. LACTULOSE. [Concomitant]
     Active Substance: LACTULOSE
  4. SPIRONOLACTONE. [Concomitant]
     Active Substance: SPIRONOLACTONE
  5. SERTRALINE [Concomitant]
     Active Substance: SERTRALINE HYDROCHLORIDE
  6. LEVOTHYROXINE. [Concomitant]
     Active Substance: LEVOTHYROXINE
  7. ADEMPAS [Suspect]
     Active Substance: RIOCIGUAT
     Indication: PULMONARY EMBOLISM
     Route: 048
     Dates: start: 201701
  8. SENNA [Concomitant]
     Active Substance: SENNA LEAF\SENNOSIDES\SENNOSIDES A AND B
  9. WARFARIN [Concomitant]
     Active Substance: WARFARIN
  10. MVI [Concomitant]
     Active Substance: VITAMINS
  11. FERROUS LSULFATE [Concomitant]
  12. ASCORBIC ACID. [Concomitant]
     Active Substance: ASCORBIC ACID
  13. BISACODYL. [Concomitant]
     Active Substance: BISACODYL
  14. TYLENOL [Concomitant]
     Active Substance: ACETAMINOPHEN

REACTIONS (1)
  - Presyncope [None]

NARRATIVE: CASE EVENT DATE: 20191016
